FAERS Safety Report 23237080 (Version 1)
Quarter: 2023Q4

REPORT INFORMATION
  Report Type: Spontaneous
  Country: CA (occurrence: CA)
  Receive Date: 20231128
  Receipt Date: 20231128
  Transmission Date: 20240110
  Serious: Yes (Hospitalization)
  Sender: FDA-Public Use
  Company Number: CA-AstraZeneca-2023A262973

PATIENT
  Sex: Female

DRUGS (1)
  1. TRASTUZUMAB DERUXTECAN [Suspect]
     Active Substance: TRASTUZUMAB DERUXTECAN
     Indication: HER2 positive breast cancer
     Dosage: 279 MG, ONCE EVERY 3 WK
     Route: 042

REACTIONS (3)
  - Dizziness [Unknown]
  - Nausea [Unknown]
  - Hospitalisation [Unknown]
